FAERS Safety Report 10686636 (Version 1)
Quarter: 2015Q1

REPORT INFORMATION
  Report Type: Spontaneous
  Country: US (occurrence: US)
  Receive Date: 20150101
  Receipt Date: 20150101
  Transmission Date: 20150720
  Serious: No
  Sender: FDA-Public Use
  Company Number: US-ASTRAZENECA-2014SE95521

PATIENT
  Age: 516 Month
  Weight: 102.1 kg

DRUGS (9)
  1. SEROQUEL XR [Suspect]
     Active Substance: QUETIAPINE FUMARATE
     Indication: BIPOLAR I DISORDER
     Dosage: 1 50MG AT BEDTIME FOR 3DAYS, 2TAB OF 50MG IN EVENING FOR 3DAYS, 3 TABLETS EVERY EVENING 4 TO 5 HOURS
     Route: 048
     Dates: start: 20141031
  2. SEROQUEL XR [Suspect]
     Active Substance: QUETIAPINE FUMARATE
     Indication: BIPOLAR DISORDER
     Route: 048
     Dates: start: 20141118, end: 20141204
  3. CLONAZEPAM. [Concomitant]
     Active Substance: CLONAZEPAM
     Indication: ANXIETY
     Route: 048
     Dates: start: 201407
  4. DULCOLAX [Concomitant]
     Active Substance: BISACODYL OR DOCUSATE SODIUM
     Route: 065
  5. SEROQUEL XR [Suspect]
     Active Substance: QUETIAPINE FUMARATE
     Indication: BIPOLAR DISORDER
     Dosage: 1 50MG AT BEDTIME FOR 3DAYS, 2TAB OF 50MG IN EVENING FOR 3DAYS, 3 TABLETS EVERY EVENING 4 TO 5 HOURS
     Route: 048
     Dates: start: 20141031
  6. SEROQUEL XR [Suspect]
     Active Substance: QUETIAPINE FUMARATE
     Indication: BIPOLAR I DISORDER
     Route: 048
     Dates: start: 20141118, end: 20141204
  7. PROZAC [Concomitant]
     Active Substance: FLUOXETINE HYDROCHLORIDE
     Indication: DEPRESSION
     Route: 048
     Dates: start: 201407
  8. GABAPENTIN. [Concomitant]
     Active Substance: GABAPENTIN
     Indication: NERVOUSNESS
     Route: 048
     Dates: start: 20141118
  9. CEFTIN [Concomitant]
     Active Substance: CEFUROXIME AXETIL

REACTIONS (10)
  - Back pain [Unknown]
  - Vomiting [Unknown]
  - Chest discomfort [Unknown]
  - Pneumonia [Unknown]
  - Flank pain [Unknown]
  - Drug dose omission [Unknown]
  - Incorrect dose administered [Unknown]
  - Anxiety [Unknown]
  - Dizziness [Unknown]
  - Chest pain [Unknown]

NARRATIVE: CASE EVENT DATE: 201411
